FAERS Safety Report 23889174 (Version 1)
Quarter: 2024Q2

REPORT INFORMATION
  Report Type: Spontaneous
  Country: US (occurrence: None)
  Receive Date: 20240523
  Receipt Date: 20240523
  Transmission Date: 20240716
  Serious: Yes (Other)
  Sender: FDA-Public Use
  Company Number: None

PATIENT
  Age: 84 Year
  Sex: Female
  Weight: 84.1 kg

DRUGS (1)
  1. ALIMTA [Suspect]
     Active Substance: PEMETREXED DISODIUM
     Indication: Non-small cell lung cancer
     Dosage: 950 MG ONCE INTRAVENOUS ?
     Route: 042
     Dates: start: 20240321

REACTIONS (3)
  - Abdominal pain [None]
  - Muscle spasms [None]
  - Infusion related reaction [None]

NARRATIVE: CASE EVENT DATE: 20240411
